FAERS Safety Report 12655039 (Version 1)
Quarter: 2016Q3

REPORT INFORMATION
  Report Type: Spontaneous
  Country: JP (occurrence: JP)
  Receive Date: 20160816
  Receipt Date: 20160816
  Transmission Date: 20161109
  Serious: Yes (Death)
  Sender: FDA-Public Use
  Company Number: JP-TEVA-683311ISR

PATIENT
  Age: 69 Year
  Sex: Female

DRUGS (11)
  1. G-LASTA [Suspect]
     Active Substance: PEGFILGRASTIM
     Dosage: 3.6 MILLIGRAM DAILY;
     Route: 058
     Dates: start: 20160518, end: 20160518
  2. BLEO [Suspect]
     Active Substance: BLEOMYCIN HYDROCHLORIDE
     Indication: OVARIAN GRANULOSA CELL TUMOUR
     Dosage: 30 MILLIGRAM DAILY;
     Route: 042
     Dates: start: 20160418, end: 20160606
  3. GRANISETRON HYDROCHLORIDE. [Concomitant]
     Active Substance: GRANISETRON HYDROCHLORIDE
     Dosage: 12 DOSE IN TOTAL
     Route: 042
     Dates: start: 20160418, end: 20160516
  4. FILGRASTIM BS INJ. ^K^ [Suspect]
     Active Substance: FILGRASTIM
     Dosage: 75 MICROGRAM DAILY;
     Route: 058
     Dates: start: 20160502, end: 20160613
  5. ALOXI [Concomitant]
     Active Substance: PALONOSETRON HYDROCHLORIDE
     Dosage: 2 DOSE IN TOTAL
     Route: 042
     Dates: start: 20160530, end: 20160606
  6. MEROPENEM. [Concomitant]
     Active Substance: MEROPENEM
     Dosage: .5 GRAM DAILY;
     Route: 042
     Dates: start: 20160613, end: 20160621
  7. ETOPOSIDE. [Suspect]
     Active Substance: ETOPOSIDE
     Indication: OVARIAN GRANULOSA CELL TUMOUR
     Dosage: 148.5 MILLIGRAM DAILY;
     Route: 042
     Dates: start: 20160418, end: 20160603
  8. EMEND [Concomitant]
     Active Substance: APREPITANT
     Dosage: 80 MILLIGRAM DAILY;
     Route: 048
     Dates: start: 20160418, end: 20160603
  9. EMEND [Concomitant]
     Active Substance: APREPITANT
     Dosage: 125 MILLIGRAM DAILY;
     Route: 048
     Dates: start: 20160418, end: 20160603
  10. CISPLATIN. [Suspect]
     Active Substance: CISPLATIN
     Indication: OVARIAN GRANULOSA CELL TUMOUR
     Dosage: 29.7 MILLIGRAM DAILY;
     Route: 042
     Dates: start: 20160418, end: 20160603
  11. DEXART [Concomitant]
     Active Substance: DEXAMETHASONE SODIUM PHOSPHATE
     Route: 042
     Dates: start: 20160418, end: 20160513

REACTIONS (1)
  - Interstitial lung disease [Fatal]

NARRATIVE: CASE EVENT DATE: 20160615
